FAERS Safety Report 7259747-4 (Version None)
Quarter: 2011Q1

REPORT INFORMATION
  Report Type: 
  Country: None (occurrence: None)
  Receive Date: 20110130
  Receipt Date: 20100901
  Transmission Date: 20110831
  Serious: No
  Sender: FDA-Public Use
  Company Number: US-ABBOTT-10P-163-0663015-00

PATIENT
  Sex: Female
  Weight: 68.1 kg

DRUGS (4)
  1. NEXIUM [Concomitant]
     Indication: HIATUS HERNIA
     Route: 048
  2. CALCIUM SUPPLEMENT [Concomitant]
     Indication: MINERAL SUPPLEMENTATION
     Route: 048
  3. LEXAPRO [Concomitant]
     Indication: ANXIETY
     Route: 048
  4. HUMIRA [Suspect]
     Indication: CROHN'S DISEASE
     Route: 058
     Dates: start: 20100601

REACTIONS (3)
  - GALACTORRHOEA [None]
  - BREAST ENLARGEMENT [None]
  - BREAST PAIN [None]
